FAERS Safety Report 18261707 (Version 1)
Quarter: 2020Q3

REPORT INFORMATION
  Report Type: Spontaneous
  Country: CA (occurrence: CA)
  Receive Date: 20200914
  Receipt Date: 20200914
  Transmission Date: 20201103
  Serious: Yes (Hospitalization)
  Sender: FDA-Public Use
  Company Number: CA-ACCORD-200221

PATIENT
  Age: 73 Year
  Sex: Female

DRUGS (13)
  1. HYDROCHLOROTHIAZIDE/QUINAPRIL [Concomitant]
     Active Substance: HYDROCHLOROTHIAZIDE\QUINAPRIL HYDROCHLORIDE
  2. METFORMIN [Concomitant]
     Active Substance: METFORMIN HYDROCHLORIDE
  3. WARFARIN [Concomitant]
     Active Substance: WARFARIN
  4. AMIODARONE [Concomitant]
     Active Substance: AMIODARONE
  5. BISOPROLOL [Concomitant]
     Active Substance: BISOPROLOL
  6. GLICLAZIDE [Concomitant]
     Active Substance: GLICLAZIDE
  7. DOCETAXEL. [Suspect]
     Active Substance: DOCETAXEL
     Indication: BREAST CANCER
     Dosage: STRENGTH: 1/4/8 ML,SINGLE DOSE VIALS, INJECTION FOR I.V. INFUSION,1 EVERY 21 DAYS
     Route: 042
  8. FILGRASTIM [Concomitant]
     Active Substance: FILGRASTIM
  9. HYDROMORPHONE/HYDROMORPHONE HYDROCHLORIDE [Concomitant]
     Active Substance: HYDROMORPHONE
  10. ROSUVASTATIN/ROSUVASTATIN CALCIUM [Concomitant]
     Active Substance: ROSUVASTATIN CALCIUM
  11. DEXAMETHASONE. [Suspect]
     Active Substance: DEXAMETHASONE
     Indication: HYPERSENSITIVITY
     Dosage: STRENGTH:4 MG, 2 EVERY 1 DAYS
     Route: 048
  12. PARACETAMOL [Concomitant]
     Active Substance: ACETAMINOPHEN
  13. JANUVIA [Concomitant]
     Active Substance: SITAGLIPTIN PHOSPHATE

REACTIONS (9)
  - Blood glucose increased [Unknown]
  - Fungal infection [Unknown]
  - Haemoglobin abnormal [Unknown]
  - Immunodeficiency [Unknown]
  - Candida infection [Unknown]
  - Asthenia [Unknown]
  - White blood cell count increased [Unknown]
  - Fall [Unknown]
  - Hyperglycaemia [Unknown]
